FAERS Safety Report 16202603 (Version 1)
Quarter: 2019Q2

REPORT INFORMATION
  Report Type: Spontaneous
  Country: US (occurrence: US)
  Receive Date: 20190416
  Receipt Date: 20190416
  Transmission Date: 20190711
  Serious: No
  Sender: FDA-Public Use
  Company Number: US-PFIZER INC-2018188626

PATIENT
  Age: 48 Year
  Sex: Male
  Weight: 102 kg

DRUGS (6)
  1. AMITRIPTYLINE [Concomitant]
     Active Substance: AMITRIPTYLINE
     Indication: MENTAL DISORDER
  2. AMITRIPTYLINE [Concomitant]
     Active Substance: AMITRIPTYLINE
     Indication: BIPOLAR DISORDER
  3. LYRICA [Suspect]
     Active Substance: PREGABALIN
     Dosage: 100 UNK, UNK
  4. LYRICA [Suspect]
     Active Substance: PREGABALIN
     Indication: NEUROPATHY PERIPHERAL
     Dosage: 200 MG, UNK, (200MG ONE TABLET THREE TIMES A DAY. SOMETIMES JUST TAKE 2 TIMES A DAY)
     Dates: start: 2017
  5. LYRICA [Suspect]
     Active Substance: PREGABALIN
     Indication: NERVE INJURY
     Dosage: 50 UNK, UNK, (2-3 TIMES A DAY)
  6. AMITRIPTYLINE [Concomitant]
     Active Substance: AMITRIPTYLINE
     Indication: DEPRESSION
     Dosage: 100 MG, 1X/DAY, (AT NIGHT)
     Dates: start: 2017

REACTIONS (6)
  - Product use issue [Unknown]
  - Dry skin [Not Recovered/Not Resolved]
  - Intentional product use issue [Not Recovered/Not Resolved]
  - Vision blurred [Not Recovered/Not Resolved]
  - Skin fissures [Unknown]
  - Somnolence [Unknown]

NARRATIVE: CASE EVENT DATE: 2017
